FAERS Safety Report 25919750 (Version 1)
Quarter: 2025Q4

REPORT INFORMATION
  Report Type: Spontaneous
  Country: US (occurrence: US)
  Receive Date: 20251014
  Receipt Date: 20251014
  Transmission Date: 20260118
  Serious: No
  Sender: BOTANIX PHARMACEUTICALS
  Company Number: US-BOTANIX PHARMACEUTICALS-2025BOT00277

PATIENT
  Age: 4 Decade
  Sex: Male
  Weight: 63.492 kg

DRUGS (1)
  1. SOFDRA [Suspect]
     Active Substance: SOFPIRONIUM BROMIDE
     Dosage: UNK
     Route: 061

REACTIONS (2)
  - Mydriasis [Recovered/Resolved]
  - Accidental exposure to product [Recovered/Resolved]
